FAERS Safety Report 4608248-8 (Version None)
Quarter: 2005Q1

REPORT INFORMATION
  Report Type: 
  Country: None (occurrence: None)
  Receive Date: 20050311
  Receipt Date: 20050301
  Transmission Date: 20050727
  Serious: Yes (Other)
  Sender: FDA-Public Use
  Company Number: 2004AP04913

PATIENT
  Sex: Male

DRUGS (3)
  1. ZOLADEX [Suspect]
     Indication: PROSTATE CANCER
     Dosage: 10.8 MG Q3MO SQ
     Route: 058
     Dates: start: 20040907, end: 20040907
  2. MAGNESIUM OXIDE [Concomitant]
  3. LEUPLIN [Concomitant]

REACTIONS (3)
  - GAMMA-GLUTAMYLTRANSFERASE INCREASED [None]
  - GASTROINTESTINAL DISORDER [None]
  - LIVER FUNCTION TEST ABNORMAL [None]
